FAERS Safety Report 4846899-6 (Version None)
Quarter: 2005Q4

REPORT INFORMATION
  Report Type: 
  Country: None (occurrence: None)
  Receive Date: 20051202
  Receipt Date: 20051125
  Transmission Date: 20060501
  Serious: Yes (Death)
  Sender: FDA-Public Use
  Company Number: 2005JP001842

PATIENT
  Age: 70 Year
  Sex: Female

DRUGS (4)
  1. FUNGUARD(MICAFUNGIN) INJECTION [Suspect]
     Dosage: SEE IMAGE
     Route: 041
     Dates: start: 20050101, end: 20050101
  2. FUNGUARD(MICAFUNGIN) INJECTION [Suspect]
     Dosage: SEE IMAGE
     Route: 041
     Dates: start: 20050831, end: 20050101
  3. CARBENIN (BETAMIPRON, PANIIPENEM) INJECTION [Suspect]
     Dosage: IV NOS
     Route: 042
     Dates: start: 20050831, end: 20050101
  4. PENTCILLIN (PIPERACILLIN SODIUM) INJECTION [Suspect]
     Dosage: IV NOS
     Route: 042
     Dates: start: 20050101

REACTIONS (2)
  - ALANINE AMINOTRANSFERASE INCREASED [None]
  - ASPARTATE AMINOTRANSFERASE INCREASED [None]
